FAERS Safety Report 13115420 (Version 1)
Quarter: 2017Q1

REPORT INFORMATION
  Report Type: Report from Study
  Country: None (occurrence: CO)
  Receive Date: 20170113
  Receipt Date: 20170113
  Transmission Date: 20170428
  Serious: Yes (Hospitalization)
  Sender: FDA-Public Use
  Company Number: CO-ABBVIE-17P-036-1837726-00

PATIENT
  Age: 59 Year
  Sex: Female

DRUGS (1)
  1. VIEKIRA PAK [Suspect]
     Active Substance: DASABUVIR\OMBITASVIR\PARITAPREVIR\RITONAVIR
     Indication: HEPATITIS C
     Route: 048
     Dates: start: 20161129

REACTIONS (2)
  - Purulent discharge [Not Recovered/Not Resolved]
  - Nasal neoplasm [Not Recovered/Not Resolved]

NARRATIVE: CASE EVENT DATE: 20170108
